FAERS Safety Report 6107599-8 (Version None)
Quarter: 2009Q1

REPORT INFORMATION
  Report Type: 
  Country: None (occurrence: None)
  Receive Date: 20090302
  Receipt Date: 20081013
  Transmission Date: 20090719
  Serious: Yes (Other)
  Sender: FDA-Public Use
  Company Number: WAES 0810USA03848

PATIENT
  Age: 56 Year
  Sex: Male

DRUGS (3)
  1. PRINIVIL [Suspect]
     Dosage: 5 MG/DAILY/PO : 10 MG/BID/PO
     Route: 048
     Dates: start: 20030701
  2. PRINIVIL [Suspect]
     Dosage: 5 MG/DAILY/PO : 10 MG/BID/PO
     Route: 048
     Dates: start: 20030729
  3. BUMEX [Suspect]

REACTIONS (1)
  - RENAL FAILURE ACUTE [None]
